FAERS Safety Report 12876665 (Version 1)
Quarter: 2016Q4

REPORT INFORMATION
  Report Type: Spontaneous
  Country: US (occurrence: US)
  Receive Date: 20161024
  Receipt Date: 20161024
  Transmission Date: 20170207
  Serious: No
  Sender: FDA-Public Use
  Company Number: US-009507513-1610USA005404

PATIENT
  Age: 34 Year
  Sex: Female
  Weight: 63.49 kg

DRUGS (1)
  1. NEXPLANON [Suspect]
     Active Substance: ETONOGESTREL
     Indication: CONTRACEPTION
     Dosage: 3 YEARS, LEFT ARM
     Route: 059
     Dates: start: 20160627

REACTIONS (7)
  - Amenorrhoea [Recovered/Resolved]
  - Feeling abnormal [Unknown]
  - Abdominal discomfort [Unknown]
  - Menstrual disorder [Unknown]
  - Feeling of body temperature change [Unknown]
  - Dizziness [Unknown]
  - Depressed mood [Unknown]

NARRATIVE: CASE EVENT DATE: 20160627
